FAERS Safety Report 6601176-8 (Version None)
Quarter: 2010Q1

REPORT INFORMATION
  Report Type: 
  Country: None (occurrence: None)
  Receive Date: 20100224
  Receipt Date: 20100224
  Transmission Date: 20100710
  Serious: Yes (Other)
  Sender: FDA-Public Use
  Company Number: None

PATIENT
  Age: 47 Year
  Sex: Female
  Weight: 47.6277 kg

DRUGS (2)
  1. ZOLPIDEM [Suspect]
     Indication: INSOMNIA
     Dosage: 10 MG 1 PER NITE
     Dates: start: 20100115, end: 20100124
  2. ZOLPIDEM [Suspect]
     Indication: INSOMNIA
     Dosage: 10 MG 1 PER NITE AFTER 48 HRS
     Dates: start: 20100125

REACTIONS (5)
  - AGITATION [None]
  - ANGER [None]
  - DIZZINESS [None]
  - MIGRAINE [None]
  - MOOD ALTERED [None]
